FAERS Safety Report 8069071-8 (Version None)
Quarter: 2012Q1

REPORT INFORMATION
  Report Type: 
  Country: None (occurrence: None)
  Receive Date: 20120125
  Receipt Date: 20111007
  Transmission Date: 20120608
  Serious: Yes (Life-Threatening, Other)
  Sender: FDA-Public Use
  Company Number: CA-JNJFOC-20120105963

PATIENT
  Sex: Male
  Weight: 114 kg

DRUGS (8)
  1. LIPITOR [Concomitant]
     Route: 065
  2. GLUCOFORM [Concomitant]
     Route: 065
  3. LAXATIVE [Concomitant]
     Route: 065
  4. REMICADE [Suspect]
     Route: 042
     Dates: start: 20111007, end: 20111007
  5. REMICADE [Suspect]
     Indication: COLITIS ULCERATIVE
     Route: 042
  6. SYMBICORT [Concomitant]
     Route: 065
  7. VITAMIN D [Concomitant]
     Route: 065
  8. METFORMIN HCL [Concomitant]
     Route: 065

REACTIONS (1)
  - ASTHMA [None]
